FAERS Safety Report 12713112 (Version 1)
Quarter: 2016Q3

REPORT INFORMATION
  Report Type: Report from Study
  Country: US (occurrence: US)
  Receive Date: 20160902
  Receipt Date: 20160902
  Transmission Date: 20161109
  Serious: Yes (Other)
  Sender: FDA-Public Use
  Company Number: US-ABBVIE-16K-163-1714558-00

PATIENT
  Age: 76 Year
  Sex: Female
  Weight: 72.64 kg

DRUGS (1)
  1. HUMIRA [Suspect]
     Active Substance: ADALIMUMAB
     Indication: PSORIASIS
     Route: 058
     Dates: start: 20140821

REACTIONS (5)
  - Bone graft [Unknown]
  - Blood glucose increased [Unknown]
  - Gingival pain [Not Recovered/Not Resolved]
  - Weight decreased [Not Recovered/Not Resolved]
  - Vision blurred [Not Recovered/Not Resolved]

NARRATIVE: CASE EVENT DATE: 201602
